FAERS Safety Report 4648303-X (Version None)
Quarter: 2005Q2

REPORT INFORMATION
  Report Type: 
  Country: None (occurrence: None)
  Receive Date: 20050426
  Receipt Date: 20050418
  Transmission Date: 20051028
  Serious: Yes (Death, Hospitalization)
  Sender: FDA-Public Use
  Company Number: 163-20785-05010270

PATIENT
  Age: 61 Year
  Sex: Female

DRUGS (1)
  1. THALOMID [Suspect]
     Indication: MULTIPLE MYELOMA
     Dosage: 50-150 MG, DAILY, ORAL
     Route: 048
     Dates: start: 20030301, end: 20050101

REACTIONS (9)
  - CONDITION AGGRAVATED [None]
  - DISEASE PROGRESSION [None]
  - INTERVERTEBRAL DISC DISORDER [None]
  - INTRASPINAL ABSCESS [None]
  - OSTEOMYELITIS [None]
  - PARAESTHESIA [None]
  - RENAL FAILURE [None]
  - RESPIRATORY FAILURE [None]
  - SEPSIS [None]
